FAERS Safety Report 8852366 (Version 2)
Quarter: 2013Q2

REPORT INFORMATION
  Report Type: Report from Study
  Country: JP (occurrence: JP)
  Receive Date: 20121022
  Receipt Date: 20130425
  Transmission Date: 20140414
  Serious: Yes (Hospitalization, Other)
  Sender: FDA-Public Use
  Company Number: JP-VERTEX PHARMACEUTICAL INC.-2012-023224

PATIENT
  Age: 44 Year
  Sex: Male

DRUGS (10)
  1. VX-950 (TELAPREVIR) [Suspect]
     Indication: CHRONIC HEPATITIS C
     Dosage: 2250 MG, QD
     Route: 048
     Dates: start: 20120405, end: 20120614
  2. VX-950 (TELAPREVIR) [Suspect]
     Dosage: 1500 MG, QD
     Route: 048
     Dates: start: 20120615, end: 20120628
  3. RIBAVIRIN [Suspect]
     Indication: CHRONIC HEPATITIS C
     Dosage: 1000 MG, QD
     Route: 048
     Dates: start: 20120405, end: 20120809
  4. PEGINTRON [Suspect]
     Indication: CHRONIC HEPATITIS C
     Dosage: 1.5 ?G/KG, WEEKLY
     Route: 058
     Dates: start: 20120405, end: 20120713
  5. PEGINTRON [Suspect]
     Dosage: 1.125 ?G/KG, WEEKLY
     Route: 058
     Dates: start: 20120720, end: 20120720
  6. PEGINTRON [Suspect]
     Dosage: 1.5 ?G/KG, WEEKLY
     Route: 058
     Dates: start: 20120727, end: 20120727
  7. PEGINTRON [Suspect]
     Dosage: 1.125 ?G/KG, WEEKLY
     Route: 058
     Dates: start: 20120803, end: 20120803
  8. CEFCAPENE PIVOXIL HYDROCHLORIDE HYDRATE [Concomitant]
     Dosage: 300 MG, QD
     Route: 048
     Dates: start: 20120605, end: 20120611
  9. EPOETIN ALFA [Concomitant]
     Dosage: 24000 UT, PRN
     Route: 058
     Dates: start: 20120426, end: 20120727
  10. EPOETIN ALFA [Concomitant]
     Dosage: 12000 UT, PRN
     Route: 058
     Dates: start: 20120803, end: 20120803

REACTIONS (3)
  - Sepsis [Recovered/Resolved]
  - Pyelonephritis [Recovered/Resolved]
  - Neutrophil count decreased [Recovered/Resolved]
